FAERS Safety Report 25560556 (Version 3)
Quarter: 2025Q3

REPORT INFORMATION
  Report Type: Spontaneous
  Country: US (occurrence: US)
  Receive Date: 20250715
  Receipt Date: 20250715
  Transmission Date: 20251021
  Serious: No
  Sender: NOVO NORDISK
  Company Number: US-NOVOPROD-1409819

PATIENT
  Age: 70 Year
  Sex: Female

DRUGS (4)
  1. OZEMPIC [Suspect]
     Active Substance: SEMAGLUTIDE
     Indication: Diabetes mellitus
  2. OZEMPIC [Suspect]
     Active Substance: SEMAGLUTIDE
     Indication: Diabetes mellitus
  3. OZEMPIC [Suspect]
     Active Substance: SEMAGLUTIDE
     Indication: Diabetes mellitus
     Route: 058
  4. OZEMPIC [Suspect]
     Active Substance: SEMAGLUTIDE
     Route: 058

REACTIONS (7)
  - Migraine [Recovered/Resolved]
  - Weight increased [Unknown]
  - Dysgeusia [Not Recovered/Not Resolved]
  - Nausea [Recovered/Resolved]
  - Product use issue [Unknown]
  - Wrong technique in product usage process [Unknown]
  - Off label use [Unknown]

NARRATIVE: CASE EVENT DATE: 20240101
